FAERS Safety Report 5231545-2 (Version None)
Quarter: 2007Q1

REPORT INFORMATION
  Report Type: 
  Country: None (occurrence: None)
  Receive Date: 20061201
  Receipt Date: 20060913
  Transmission Date: 20070707
  Serious: No
  Sender: FDA-Public Use
  Company Number: 2006PV021231

PATIENT
  Age: 59 Year
  Sex: Female
  Weight: 92.5338 kg

DRUGS (4)
  1. BYETTA [Suspect]
     Indication: DIABETES MELLITUS NON-INSULIN-DEPENDENT
     Dosage: SEE IMAGE
     Route: 058
     Dates: start: 20060101, end: 20060301
  2. BYETTA [Suspect]
     Indication: WEIGHT CONTROL
     Dosage: SEE IMAGE
     Route: 058
     Dates: start: 20060101, end: 20060301
  3. BYETTA [Suspect]
     Indication: DIABETES MELLITUS NON-INSULIN-DEPENDENT
     Dosage: SEE IMAGE
     Route: 058
     Dates: start: 20060301
  4. BYETTA [Suspect]
     Indication: WEIGHT CONTROL
     Dosage: SEE IMAGE
     Route: 058
     Dates: start: 20060301

REACTIONS (3)
  - INCREASED APPETITE [None]
  - INJECTION SITE RASH [None]
  - WEIGHT INCREASED [None]
